FAERS Safety Report 4810010-8 (Version None)
Quarter: 2005Q4

REPORT INFORMATION
  Report Type: 
  Country: None (occurrence: None)
  Receive Date: 20051024
  Receipt Date: 20050920
  Transmission Date: 20060501
  Serious: Yes (Life-Threatening, Other)
  Sender: FDA-Public Use
  Company Number: 200508251

PATIENT
  Age: 53 Year
  Sex: Female

DRUGS (1)
  1. BOTOX [Suspect]
     Indication: MUSCLE SPASTICITY
     Dosage: 100 UNITS ONCE IM
     Route: 030

REACTIONS (3)
  - DYSPNOEA [None]
  - SWELLING FACE [None]
  - SWOLLEN TONGUE [None]
